FAERS Safety Report 25133735 (Version 1)
Quarter: 2025Q1

REPORT INFORMATION
  Report Type: Spontaneous
  Country: US (occurrence: US)
  Receive Date: 20250328
  Receipt Date: 20250328
  Transmission Date: 20250408
  Serious: No
  Sender: ROCHE
  Company Number: US-ROCHE-10000235213

PATIENT
  Age: 72 Year
  Sex: Female

DRUGS (4)
  1. BEVACIZUMAB [Suspect]
     Active Substance: BEVACIZUMAB
     Indication: Macular oedema
     Route: 050
  2. TOBRAMYCIN [Concomitant]
     Active Substance: TOBRAMYCIN
  3. LOTEPREDNOL [Concomitant]
     Active Substance: LOTEPREDNOL
  4. AFLIBERCEPT [Concomitant]
     Active Substance: AFLIBERCEPT
     Indication: Macular oedema
     Route: 050

REACTIONS (3)
  - Retinal vasculitis [Unknown]
  - Off label use [Unknown]
  - Off label use [Unknown]
